FAERS Safety Report 24384407 (Version 1)
Quarter: 2024Q3

REPORT INFORMATION
  Report Type: Spontaneous
  Country: US (occurrence: None)
  Receive Date: 20240930
  Receipt Date: 20240930
  Transmission Date: 20241016
  Serious: No
  Sender: Public
  Company Number: None

PATIENT
  Age: 53 Year
  Sex: Female

DRUGS (4)
  1. XDEMVY [Suspect]
     Active Substance: LOTILANER
     Dosage: 1 GTT DROP TWICE A DAY OPHTHALMIC
     Route: 047
     Dates: start: 20240925, end: 20240925
  2. Flonase nasal [Concomitant]
  3. Zyrtec oral [Concomitant]
  4. Pepcid oral [Concomitant]

REACTIONS (3)
  - Dizziness [None]
  - Nausea [None]
  - Ocular hyperaemia [None]

NARRATIVE: CASE EVENT DATE: 20240925
